FAERS Safety Report 7528552-3 (Version None)
Quarter: 2011Q2

REPORT INFORMATION
  Report Type: 
  Country: None (occurrence: None)
  Receive Date: 20110607
  Receipt Date: 20100730
  Transmission Date: 20111010
  Serious: No
  Sender: FDA-Public Use
  Company Number: US-ASTRAZENECA-2010SE35660

PATIENT
  Sex: Female

DRUGS (1)
  1. PRILOSEC OTC [Suspect]
     Dosage: UNKNOWN
     Route: 048
     Dates: start: 20100601

REACTIONS (3)
  - DYSGEUSIA [None]
  - CONSTIPATION [None]
  - INCORRECT DRUG ADMINISTRATION DURATION [None]
